FAERS Safety Report 4657435-1 (Version None)
Quarter: 2005Q2

REPORT INFORMATION
  Report Type: 
  Country: None (occurrence: None)
  Receive Date: 20050509
  Receipt Date: 20050509
  Transmission Date: 20051028
  Serious: Yes (Hospitalization, Other)
  Sender: FDA-Public Use
  Company Number: None

PATIENT
  Age: 48 Year
  Sex: Female
  Weight: 78.4723 kg

DRUGS (5)
  1. CORICIDIN D SRT [Suspect]
     Indication: NASOPHARYNGITIS
     Dosage: ORAL
     Route: 048
     Dates: start: 19960425, end: 19960501
  2. PREMARIN [Suspect]
     Indication: HORMONE REPLACEMENT THERAPY
     Dosage: 1.25 MG QD ORAL
     Route: 048
     Dates: start: 19810101, end: 20020101
  3. LASIX [Concomitant]
  4. RHINOCORT [Concomitant]
  5. KLOR-CON [Concomitant]

REACTIONS (16)
  - AMNESIA [None]
  - ANXIETY [None]
  - CEREBRAL INFARCTION [None]
  - CONTUSION [None]
  - DEPRESSION [None]
  - DISTURBANCE IN ATTENTION [None]
  - DYSPHAGIA [None]
  - FATIGUE [None]
  - HAEMATOMA [None]
  - HEADACHE [None]
  - ISCHAEMIC STROKE [None]
  - MALIGNANT HYPERTENSION [None]
  - MEMORY IMPAIRMENT [None]
  - STRESS [None]
  - TEMPERATURE REGULATION DISORDER [None]
  - THINKING ABNORMAL [None]
